FAERS Safety Report 6354859-1 (Version None)
Quarter: 2009Q3

REPORT INFORMATION
  Report Type: 
  Country: None (occurrence: None)
  Receive Date: 20090914
  Receipt Date: 20090504
  Transmission Date: 20100115
  Serious: Yes (Other)
  Sender: FDA-Public Use
  Company Number: GB-ROCHE-654754

PATIENT

DRUGS (5)
  1. PYRIMETHAMINE/SULFADOXINE [Suspect]
     Dosage: 3 TABLETS (500MG  SULFADOXINE/ 25MG PYRIMETHAMINE PER TABLET) AT ONCE
     Route: 064
  2. AMODIAQUINE [Suspect]
     Dosage: DOSE ADMINISTERED FOR 3 DAYS.
     Route: 064
  3. IRON SUPPLEMENT [Concomitant]
  4. FOLIC ACID [Concomitant]
  5. TETANUS TOXOID [Concomitant]

REACTIONS (1)
  - DEVELOPMENTAL DELAY [None]
